FAERS Safety Report 12841481 (Version 1)
Quarter: 2016Q4

REPORT INFORMATION
  Report Type: Spontaneous
  Country: US (occurrence: US)
  Receive Date: 20161012
  Receipt Date: 20161012
  Transmission Date: 20170207
  Serious: No
  Sender: FDA-Public Use
  Company Number: US-009507513-1609USA014106

PATIENT

DRUGS (1)
  1. NEXPLANON [Suspect]
     Active Substance: ETONOGESTREL
     Dosage: 1 DF, UNK
     Route: 059
     Dates: start: 201604, end: 2016

REACTIONS (4)
  - Implant site fibrosis [Unknown]
  - Rash generalised [Recovering/Resolving]
  - Difficulty removing drug implant [Recovered/Resolved]
  - Implant site rash [Recovering/Resolving]

NARRATIVE: CASE EVENT DATE: 2016
